FAERS Safety Report 6829266-5 (Version None)
Quarter: 2010Q3

REPORT INFORMATION
  Report Type: 
  Country: None (occurrence: None)
  Receive Date: 20100709
  Receipt Date: 20070308
  Transmission Date: 20110219
  Serious: No
  Sender: FDA-Public Use
  Company Number: US-PFIZER INC-2007019934

PATIENT
  Sex: Female
  Weight: 61.69 kg

DRUGS (3)
  1. CHANTIX [Suspect]
     Indication: SMOKING CESSATION THERAPY
     Dates: start: 20070201
  2. IBANDRONATE SODIUM [Concomitant]
     Indication: OSTEOPOROSIS
  3. VALSARTAN [Concomitant]
     Indication: HYPERTENSION

REACTIONS (1)
  - NAUSEA [None]
